FAERS Safety Report 26056295 (Version 1)
Quarter: 2025Q4

REPORT INFORMATION
  Report Type: Spontaneous
  Country: US (occurrence: US)
  Receive Date: 20251118
  Receipt Date: 20251118
  Transmission Date: 20260118
  Serious: No
  Sender: CIPLA
  Company Number: US-CIPLA LTD.-2025US14245

PATIENT

DRUGS (2)
  1. ALBUTEROL [Suspect]
     Active Substance: ALBUTEROL
     Indication: Asthma
     Dosage: 90 MICROGRAM, PRN, REGULAR USER (1 PUFF AS NEEDED EVERY FOUR HOURS)
     Dates: start: 202406
  2. ALBUTEROL [Suspect]
     Active Substance: ALBUTEROL
     Dosage: 90 MICROGRAM, PRN (1 PUFF AS NEEDED EVERY FOUR HOURS)
     Dates: start: 20251025

REACTIONS (4)
  - Dyspnoea [Unknown]
  - Drug dose omission by device [Unknown]
  - Device delivery system issue [Unknown]
  - Product residue present [Unknown]

NARRATIVE: CASE EVENT DATE: 20250101
